FAERS Safety Report 7675392-0 (Version None)
Quarter: 2011Q3

REPORT INFORMATION
  Report Type: 
  Country: None (occurrence: None)
  Receive Date: 20110810
  Receipt Date: 20110801
  Transmission Date: 20111222
  Serious: Yes (Other)
  Sender: FDA-Public Use
  Company Number: ZA-ASTRAZENECA-2011SE44324

PATIENT
  Sex: Female

DRUGS (5)
  1. CO APPROVEL [Concomitant]
  2. CALCICARD [Concomitant]
  3. CRESTOR [Suspect]
     Indication: HYPERCHOLESTEROLAEMIA
     Route: 048
     Dates: start: 20100327, end: 20100801
  4. LEVOTHYROXINE SODIUM [Concomitant]
  5. SERETIDE [Concomitant]

REACTIONS (5)
  - RASH [None]
  - HEADACHE [None]
  - AGGRESSION [None]
  - SUICIDAL IDEATION [None]
  - IRRITABILITY [None]
